FAERS Safety Report 21452895 (Version 1)
Quarter: 2022Q4

REPORT INFORMATION
  Report Type: Spontaneous
  Country: PT (occurrence: None)
  Receive Date: 20221013
  Receipt Date: 20221013
  Transmission Date: 20230113
  Serious: Yes (Other)
  Sender: FDA-Public Use
  Company Number: PT-ROCHE-3194274

PATIENT
  Age: 76 Year
  Sex: Male

DRUGS (2)
  1. ALECTINIB [Suspect]
     Active Substance: ALECTINIB
     Indication: Product used for unknown indication
     Dosage: LAST DOSE ADMINISTERED ON /OCT/2021
     Route: 065
     Dates: start: 201811
  2. ALECTINIB [Suspect]
     Active Substance: ALECTINIB
     Route: 065
     Dates: start: 202104

REACTIONS (3)
  - Lung disorder [Unknown]
  - Arrhythmia [Unknown]
  - Asthenia [Unknown]
